FAERS Safety Report 7525887-5 (Version None)
Quarter: 2011Q2

REPORT INFORMATION
  Report Type: 
  Country: None (occurrence: None)
  Receive Date: 20110606
  Receipt Date: 20110520
  Transmission Date: 20111010
  Serious: Yes (Hospitalization, Congenital Anomaly)
  Sender: FDA-Public Use
  Company Number: A0930262A

PATIENT
  Sex: Male

DRUGS (5)
  1. MECLIZINE [Concomitant]
     Route: 064
  2. PRENATAL VITAMINS [Concomitant]
     Route: 064
  3. FERROUS SULFATE TAB [Concomitant]
     Route: 064
  4. PAXIL [Suspect]
     Indication: DEPRESSION
     Dosage: 20MG PER DAY
     Route: 064
     Dates: start: 20000101, end: 20010101
  5. COVERA-HS [Concomitant]
     Route: 064

REACTIONS (17)
  - BRADYCARDIA [None]
  - HYPOVOLAEMIC SHOCK [None]
  - TRICUSPID VALVE INCOMPETENCE [None]
  - CAESAREAN SECTION [None]
  - PREMATURE BABY [None]
  - DEHYDRATION [None]
  - CONGENITAL CORONARY ARTERY MALFORMATION [None]
  - CONGENITAL ANOMALY [None]
  - APNOEA [None]
  - DRUG EXPOSURE DURING PREGNANCY [None]
  - PULMONARY VALVE INCOMPETENCE [None]
  - ATRIAL SEPTAL DEFECT [None]
  - OLIGOHYDRAMNIOS [None]
  - DIZZINESS [None]
  - PRESYNCOPE [None]
  - CARDIAC MURMUR [None]
  - JAUNDICE [None]
